FAERS Safety Report 13829222 (Version 2)
Quarter: 2017Q3

REPORT INFORMATION
  Report Type: Spontaneous
  Country: US (occurrence: US)
  Receive Date: 20170803
  Receipt Date: 20170818
  Transmission Date: 20171127
  Serious: Yes (Hospitalization, Other)
  Sender: FDA-Public Use
  Company Number: US-TAKEDA-2017TUS016249

PATIENT
  Age: 31 Year
  Sex: Female
  Weight: 54 kg

DRUGS (7)
  1. TRINTELLIX [Suspect]
     Active Substance: VORTIOXETINE HYDROBROMIDE
     Dosage: 20 MG, QD
     Route: 048
     Dates: start: 20170720
  2. TRAZODONE [Concomitant]
     Active Substance: TRAZODONE HYDROCHLORIDE
     Dosage: 150 MG, QD
     Route: 048
     Dates: start: 20170713
  3. EFFEXOR XR [Concomitant]
     Active Substance: VENLAFAXINE HYDROCHLORIDE
     Dosage: 75 MG, QD
     Dates: start: 20170501
  4. TRINTELLIX [Suspect]
     Active Substance: VORTIOXETINE HYDROBROMIDE
     Indication: MAJOR DEPRESSION
     Dosage: 10 MG, QD
     Route: 048
     Dates: start: 20170713, end: 20170719
  5. GABAPENTIN. [Concomitant]
     Active Substance: GABAPENTIN
     Dosage: 300 MG, TID
     Dates: start: 20170713
  6. REXULTI [Concomitant]
     Active Substance: BREXPIPRAZOLE
     Dosage: 0.5 MG, QD
     Dates: start: 20170713, end: 20170720
  7. TRINTELLIX [Suspect]
     Active Substance: VORTIOXETINE HYDROBROMIDE
     Dosage: 10 MG, QD
     Route: 048
     Dates: end: 20170802

REACTIONS (1)
  - Pancreatitis [Recovered/Resolved]

NARRATIVE: CASE EVENT DATE: 201707
